FAERS Safety Report 22322278 (Version 1)
Quarter: 2023Q2

REPORT INFORMATION
  Report Type: Spontaneous
  Country: ES (occurrence: ES)
  Receive Date: 20230516
  Receipt Date: 20230516
  Transmission Date: 20230722
  Serious: Yes (Hospitalization, Other)
  Sender: FDA-Public Use
  Company Number: ES-CELLTRION INC.-2023ES009914

PATIENT

DRUGS (1)
  1. BEVACIZUMAB [Suspect]
     Active Substance: BEVACIZUMAB
     Indication: Hereditary haemorrhagic telangiectasia
     Dosage: 5 MILLIGRAM/KG EVERY FIVE WEEKS/ DOSAGE1: UNIT=NOT AVAILABLE
     Route: 042

REACTIONS (4)
  - Hepatic encephalopathy [Unknown]
  - Telangiectasia [Unknown]
  - Drug effective for unapproved indication [Unknown]
  - Off label use [Unknown]
